FAERS Safety Report 8419898-5 (Version None)
Quarter: 2012Q2

REPORT INFORMATION
  Report Type: 
  Country: None (occurrence: None)
  Receive Date: 20120607
  Receipt Date: 20120604
  Transmission Date: 20120825
  Serious: Yes (Hospitalization)
  Sender: FDA-Public Use
  Company Number: US-ROXANE LABORATORIES, INC.-2012-RO-01360RO

PATIENT
  Sex: Male

DRUGS (18)
  1. SPIRONOLACTONE AND HYDROCHLOROTHIAZIDE [Suspect]
  2. NIACIN [Concomitant]
  3. FUROSEMIDE [Suspect]
  4. LISINOPRIL [Suspect]
  5. ISOSORBIDE MONONITRATE [Suspect]
  6. INSULIN ASPART [Suspect]
     Dosage: 126 U
     Dates: start: 20110311, end: 20110602
  7. INSULIN GLARGINE [Suspect]
     Dosage: 128 U
     Dates: start: 20110516
  8. ATENOLOL [Suspect]
  9. ACETYLSALICYLIC ACID SRT [Suspect]
  10. INSULIN ASPART [Suspect]
     Indication: TYPE 2 DIABETES MELLITUS
     Dosage: 120 U
  11. PLACEBO [Suspect]
     Indication: TYPE 2 DIABETES MELLITUS
     Dates: start: 20101220
  12. INSULIN [Concomitant]
     Dosage: 166 U
     Dates: start: 20110603, end: 20110811
  13. INSULIN GLARGINE [Suspect]
     Indication: TYPE 2 DIABETES MELLITUS
     Dosage: 128 U
     Dates: start: 20110811, end: 20111120
  14. INSULIN GLARGINE [Suspect]
     Dosage: 140 U
     Dates: start: 20111121, end: 20120515
  15. INSULIN [Concomitant]
     Indication: TYPE 2 DIABETES MELLITUS
     Dosage: 150 U
  16. SAXAGLIPTIN [Suspect]
     Indication: TYPE 2 DIABETES MELLITUS
     Dates: start: 20101220
  17. INSULIN ASPART [Suspect]
     Dosage: 150 U
     Dates: start: 20120603
  18. NIFEDIPINE [Suspect]

REACTIONS (2)
  - HYPOTENSION [None]
  - RENAL FAILURE ACUTE [None]
